FAERS Safety Report 12627378 (Version 2)
Quarter: 2016Q3

REPORT INFORMATION
  Report Type: Report from Study
  Country: US (occurrence: US)
  Receive Date: 20160805
  Receipt Date: 20160811
  Transmission Date: 20161109
  Serious: No
  Sender: FDA-Public Use
  Company Number: US-AMGEN-USASL2016049175

PATIENT
  Age: 63 Year
  Sex: Female

DRUGS (5)
  1. NPLATE [Suspect]
     Active Substance: ROMIPLOSTIM
     Dosage: UNK UNK, Q2WK
     Route: 065
     Dates: start: 2015
  2. NPLATE [Suspect]
     Active Substance: ROMIPLOSTIM
     Dosage: 4 MUG/KG, Q3WK
     Route: 065
     Dates: start: 2015
  3. NPLATE [Suspect]
     Active Substance: ROMIPLOSTIM
     Dosage: Q2.5 WEEKS
     Route: 065
  4. NPLATE [Suspect]
     Active Substance: ROMIPLOSTIM
     Indication: IMMUNE THROMBOCYTOPENIC PURPURA
     Dosage: UNK, QWK
     Route: 065
     Dates: start: 200907
  5. NPLATE [Suspect]
     Active Substance: ROMIPLOSTIM
     Dosage: UNK, Q10DAY
     Route: 065
     Dates: start: 2015

REACTIONS (1)
  - Off label use [Not Recovered/Not Resolved]
